FAERS Safety Report 7386162-5 (Version None)
Quarter: 2011Q1

REPORT INFORMATION
  Report Type: 
  Country: None (occurrence: None)
  Receive Date: 20110329
  Receipt Date: 20110329
  Transmission Date: 20110831
  Serious: Yes (Hospitalization)
  Sender: FDA-Public Use
  Company Number: None

PATIENT
  Age: 40 Year
  Sex: Female
  Weight: 111.1 kg

DRUGS (2)
  1. COUMADIN [Suspect]
     Indication: OPEN REDUCTION OF FRACTURE
     Dosage: 7.5 MG EVERY DAY PO
     Route: 048
     Dates: start: 20101217
  2. FERROUS SULFATE TAB [Suspect]
     Dosage: MG PO
     Route: 048

REACTIONS (1)
  - INTERNATIONAL NORMALISED RATIO INCREASED [None]
